FAERS Safety Report 16696142 (Version 1)
Quarter: 2019Q3

REPORT INFORMATION
  Report Type: Report from Study
  Country: None (occurrence: US)
  Receive Date: 20190813
  Receipt Date: 20190813
  Transmission Date: 20191004
  Serious: Yes (Hospitalization, Other)
  Sender: FDA-Public Use
  Company Number: US-ABBVIE-19K-163-2881265-00

PATIENT
  Age: 79 Year
  Sex: Female
  Weight: 62.65 kg

DRUGS (4)
  1. HUMIRA [Suspect]
     Active Substance: ADALIMUMAB
     Indication: RHEUMATOID ARTHRITIS
     Route: 058
     Dates: start: 2017
  2. BUMEX [Concomitant]
     Active Substance: BUMETANIDE
     Indication: DIURETIC THERAPY
     Route: 065
  3. SULFASALAZINE. [Concomitant]
     Active Substance: SULFASALAZINE
     Indication: RHEUMATOID ARTHRITIS
     Route: 065
  4. ZYRTEC [Concomitant]
     Active Substance: CETIRIZINE HYDROCHLORIDE
     Indication: SEASONAL ALLERGY
     Route: 065

REACTIONS (8)
  - Pyrexia [Recovered/Resolved]
  - Diarrhoea [Recovered/Resolved]
  - Fatigue [Recovered/Resolved]
  - Large intestinal obstruction [Recovering/Resolving]
  - Colon cancer [Recovering/Resolving]
  - Urinary tract infection [Recovered/Resolved]
  - Salpingo-oophorectomy [Unknown]
  - Weight decreased [Not Recovered/Not Resolved]

NARRATIVE: CASE EVENT DATE: 201905
